FAERS Safety Report 12614816 (Version 2)
Quarter: 2016Q3

REPORT INFORMATION
  Report Type: Report from Study
  Country: ES (occurrence: ES)
  Receive Date: 20160802
  Receipt Date: 20160810
  Transmission Date: 20161109
  Serious: No
  Sender: FDA-Public Use
  Company Number: ES-ABBVIE-16K-144-1690372-00

PATIENT
  Sex: Male

DRUGS (2)
  1. LEVODOPA/CARBIDOPA [Concomitant]
     Active Substance: CARBIDOPA\LEVODOPA
     Indication: PARKINSON^S DISEASE
     Route: 048
  2. DUODOPA [Suspect]
     Active Substance: CARBIDOPA\LEVODOPA
     Indication: PARKINSON^S DISEASE
     Route: 050
     Dates: start: 201602

REACTIONS (7)
  - Hyperhidrosis [Unknown]
  - Cognitive disorder [Not Recovered/Not Resolved]
  - Stoma site erythema [Unknown]
  - Stoma site irritation [Unknown]
  - Stoma site reaction [Unknown]
  - Device breakage [Unknown]
  - Device dislocation [Unknown]

NARRATIVE: CASE EVENT DATE: 2016
